FAERS Safety Report 20263759 (Version 1)
Quarter: 2021Q4

REPORT INFORMATION
  Report Type: Other
  Country: CN (occurrence: CN)
  Receive Date: 20211231
  Receipt Date: 20211231
  Transmission Date: 20220303
  Serious: Yes (Hospitalization, Other)
  Sender: FDA-Public Use
  Company Number: CN-GLAXOSMITHKLINE-CN2021APC261708

PATIENT
  Age: 46 Year
  Sex: Male

DRUGS (2)
  1. PAROXETINE HYDROCHLORIDE [Suspect]
     Active Substance: PAROXETINE HYDROCHLORIDE
     Indication: Insomnia
     Dosage: 25 MG, QD
     Route: 048
     Dates: start: 20211208, end: 20211217
  2. PAROXETINE HYDROCHLORIDE [Suspect]
     Active Substance: PAROXETINE HYDROCHLORIDE
     Indication: Insomnia
     Dosage: 20 MG, QD
     Route: 048
     Dates: start: 20211129, end: 20211208

REACTIONS (6)
  - Hyperuricaemia [Unknown]
  - Blood uric acid increased [Unknown]
  - Mood altered [Unknown]
  - Restlessness [Unknown]
  - Condition aggravated [Unknown]
  - Insomnia [Unknown]

NARRATIVE: CASE EVENT DATE: 20211214
